FAERS Safety Report 10053248 (Version 2)
Quarter: 2014Q2

REPORT INFORMATION
  Report Type: Spontaneous
  Country: BR (occurrence: BR)
  Receive Date: 20140402
  Receipt Date: 20140402
  Transmission Date: 20141212
  Serious: Yes (Other)
  Sender: FDA-Public Use
  Company Number: BR-009507513-2010SP059855

PATIENT
  Age: 30 Year
  Sex: Female
  Weight: 94 kg

DRUGS (8)
  1. NUVARING [Suspect]
     Indication: CONTRACEPTION
     Dosage: UNK
     Route: 067
     Dates: start: 20131222, end: 20140215
  2. NUVARING [Suspect]
     Indication: MENSTRUAL CYCLE MANAGEMENT
     Dosage: UNK
     Route: 067
     Dates: start: 2003, end: 201302
  3. NUVARING [Suspect]
     Indication: MENSTRUAL CYCLE MANAGEMENT
     Dosage: UNK
     Route: 067
     Dates: start: 201305
  4. NUVARING [Suspect]
     Dosage: UNK
     Route: 067
     Dates: start: 20130624, end: 20130722
  5. NUVARING [Suspect]
     Dosage: UNK
     Route: 067
     Dates: start: 201302
  6. OMEPRAZOLE [Concomitant]
     Indication: PRODUCT USED FOR UNKNOWN INDICATION
     Route: 048
  7. DIPYRONE [Concomitant]
     Indication: PRODUCT USED FOR UNKNOWN INDICATION
     Route: 048
  8. BENZETACIL [Concomitant]
     Indication: PRODUCT USED FOR UNKNOWN INDICATION
     Route: 030

REACTIONS (31)
  - Abortion [Recovered/Resolved]
  - Unintended pregnancy [Recovered/Resolved]
  - Menorrhagia [Not Recovered/Not Resolved]
  - Withdrawal bleed [Unknown]
  - Urinary tract infection [Not Recovered/Not Resolved]
  - Muscle spasms [Unknown]
  - Inappropriate schedule of drug administration [Unknown]
  - Therapeutic response changed [Unknown]
  - Therapeutic response changed [Unknown]
  - No adverse event [Unknown]
  - Drug administration error [Unknown]
  - Off label use [Unknown]
  - Incorrect drug administration duration [Unknown]
  - Anaemia [Recovered/Resolved]
  - Maternal exposure before pregnancy [Unknown]
  - Fluid retention [Not Recovered/Not Resolved]
  - Weight increased [Not Recovered/Not Resolved]
  - Urinary tract infection [Unknown]
  - Renal pain [Unknown]
  - Abdominal pain [Unknown]
  - Emotional disorder [Unknown]
  - Nervousness [Unknown]
  - Anxiety [Unknown]
  - Alopecia [Not Recovered/Not Resolved]
  - Nail growth abnormal [Not Recovered/Not Resolved]
  - Breast feeding [Unknown]
  - Drug administration error [Unknown]
  - Diarrhoea [Unknown]
  - Dysmenorrhoea [Not Recovered/Not Resolved]
  - Metrorrhagia [Not Recovered/Not Resolved]
  - Menorrhagia [Recovered/Resolved]
